FAERS Safety Report 7341237-1 (Version None)
Quarter: 2011Q1

REPORT INFORMATION
  Report Type: 
  Country: None (occurrence: None)
  Receive Date: 20110309
  Receipt Date: 20110302
  Transmission Date: 20110831
  Serious: Yes (Other)
  Sender: FDA-Public Use
  Company Number: FR-GILEAD-2011-0037151

PATIENT
  Sex: Female

DRUGS (4)
  1. ZIAGEN [Concomitant]
  2. VIRAMUNE [Concomitant]
  3. TRUVADA [Suspect]
     Indication: HEPATITIS B
  4. VIDEX [Concomitant]

REACTIONS (3)
  - DEPRESSION [None]
  - SUICIDE ATTEMPT [None]
  - OVERDOSE [None]
